FAERS Safety Report 13428858 (Version 2)
Quarter: 2017Q2

REPORT INFORMATION
  Report Type: Spontaneous
  Country: AT (occurrence: AT)
  Receive Date: 20170411
  Receipt Date: 20170419
  Transmission Date: 20170830
  Serious: Yes (Hospitalization, Other)
  Sender: FDA-Public Use
  Company Number: AT-UCBSA-2017013136

PATIENT
  Sex: Male
  Weight: 112 kg

DRUGS (2)
  1. FYCOMPA [Suspect]
     Active Substance: PERAMPANEL
     Indication: PRODUCT USED FOR UNKNOWN INDICATION
     Dosage: 4 MG, UNK ( 21 TABLETS )
     Route: 048
     Dates: start: 20170312, end: 20170312
  2. VIMPAT [Suspect]
     Active Substance: LACOSAMIDE
     Indication: EPILEPSY
     Dosage: 200 MG, (27 TABLETS)
     Route: 048
     Dates: start: 20170312, end: 20170312

REACTIONS (6)
  - Vasculitis [Recovered/Resolved]
  - Vomiting [Recovered/Resolved]
  - Drug eruption [Recovered/Resolved]
  - Nausea [Recovered/Resolved]
  - Suicide attempt [Recovered/Resolved]
  - Somnolence [Recovered/Resolved]

NARRATIVE: CASE EVENT DATE: 20170312
